FAERS Safety Report 7797461-7 (Version None)
Quarter: 2011Q4

REPORT INFORMATION
  Report Type: 
  Country: None (occurrence: None)
  Receive Date: 20111003
  Receipt Date: 20110921
  Transmission Date: 20120403
  Serious: Yes (Hospitalization)
  Sender: FDA-Public Use
  Company Number: 2011AP002147

PATIENT
  Age: 91 Year
  Sex: Male

DRUGS (5)
  1. OMEPRAZOLE [Concomitant]
  2. ZOPICLONE [Concomitant]
  3. SIMVASTATIN [Concomitant]
  4. RISPERIDONE [Suspect]
     Dosage: 0.5 MG;QD;PO
     Route: 048
     Dates: end: 20110904
  5. FUROSEMIDE [Concomitant]

REACTIONS (5)
  - HYPOTHERMIA [None]
  - BLOOD CREATINE INCREASED [None]
  - ATRIOVENTRICULAR BLOCK COMPLETE [None]
  - DEMENTIA [None]
  - BLOOD THYROID STIMULATING HORMONE INCREASED [None]
